FAERS Safety Report 24874352 (Version 1)
Quarter: 2025Q1

REPORT INFORMATION
  Report Type: Spontaneous
  Country: US (occurrence: US)
  Receive Date: 20250122
  Receipt Date: 20250122
  Transmission Date: 20250409
  Serious: No
  Sender: PFIZER
  Company Number: US-PFIZER INC-202500015476

PATIENT
  Age: 32 Year
  Sex: Female

DRUGS (13)
  1. XELJANZ XR [Suspect]
     Active Substance: TOFACITINIB CITRATE
     Dates: start: 202404
  2. METHOTREXATE [Concomitant]
     Active Substance: METHOTREXATE
  3. HYDROXYCHLOROQUINE SULFATE [Concomitant]
     Active Substance: HYDROXYCHLOROQUINE SULFATE
  4. SULFASALAZINE [Concomitant]
     Active Substance: SULFASALAZINE
  5. ALPRAZOLAM [Concomitant]
     Active Substance: ALPRAZOLAM
  6. MONTELUKAST SODIUM [Concomitant]
     Active Substance: MONTELUKAST SODIUM
  7. PREGABALIN [Concomitant]
     Active Substance: PREGABALIN
  8. METHOCARBAMOL [Concomitant]
     Active Substance: METHOCARBAMOL
  9. ALIVE WOMEN^S 50 PLUS [Concomitant]
  10. RISPERDAL [Concomitant]
     Active Substance: RISPERIDONE
  11. FOLIC ACID [Concomitant]
     Active Substance: FOLIC ACID
  12. SPIRONOLACTONE [Concomitant]
     Active Substance: SPIRONOLACTONE
  13. ADDERALL [Concomitant]
     Active Substance: AMPHETAMINE ASPARTATE\AMPHETAMINE SULFATE\DEXTROAMPHETAMINE SACCHARATE\DEXTROAMPHETAMINE SULFATE

REACTIONS (1)
  - Therapeutic product effect incomplete [Recovering/Resolving]
